FAERS Safety Report 7707997-2 (Version None)
Quarter: 2011Q3

REPORT INFORMATION
  Report Type: 
  Country: None (occurrence: None)
  Receive Date: 20110824
  Receipt Date: 20110815
  Transmission Date: 20111222
  Serious: Yes (Hospitalization)
  Sender: FDA-Public Use
  Company Number: US-ASTRAZENECA-2011SE48510

PATIENT
  Age: 18 Year

DRUGS (4)
  1. SEROQUEL XR [Suspect]
     Route: 048
  2. SEROQUEL XR [Suspect]
     Dosage: HALF TABLET IN MORNING AND ONE TABLET AT NIGHT
     Route: 048
  3. ZYPREXA [Concomitant]
  4. DIAMOX SRC [Concomitant]

REACTIONS (2)
  - WRONG TECHNIQUE IN DRUG USAGE PROCESS [None]
  - INTRACRANIAL PRESSURE INCREASED [None]
